FAERS Safety Report 4442069-4 (Version None)
Quarter: 2004Q3

REPORT INFORMATION
  Report Type: 
  Country: None (occurrence: None)
  Receive Date: 20040901
  Receipt Date: 20040817
  Transmission Date: 20050211
  Serious: Yes (Life-Threatening, Hospitalization)
  Sender: FDA-Public Use
  Company Number: STA-AE-04-MTX-368

PATIENT
  Age: 66 Year
  Sex: Female

DRUGS (16)
  1. RHEUMATREX [Suspect]
     Indication: RHEUMATOID ARTHRITIS
     Dosage: SEE IMAGE
     Route: 048
     Dates: start: 20030601, end: 20030718
  2. RHEUMATREX [Suspect]
     Indication: RHEUMATOID ARTHRITIS
     Dosage: SEE IMAGE
     Route: 048
     Dates: start: 20030719, end: 20031017
  3. RHEUMATREX [Suspect]
     Indication: RHEUMATOID ARTHRITIS
     Dosage: SEE IMAGE
     Route: 048
     Dates: start: 20031018, end: 20040206
  4. RHEUMATREX [Suspect]
     Indication: RHEUMATOID ARTHRITIS
     Dosage: SEE IMAGE
     Route: 048
     Dates: start: 20040207, end: 20040531
  5. PREDNISOLONE [Concomitant]
  6. DIGOXIN [Concomitant]
  7. BREDININ (MIZORIBINE) [Concomitant]
  8. BLOPRESS (CANDESARTAN CILEXETIL) [Concomitant]
  9. ALENDRONATE SODIUM [Concomitant]
  10. GASTER (FAMOTIDINE) [Concomitant]
  11. GLYBURIDE [Concomitant]
  12. TRIAZOLAM [Concomitant]
  13. FOLIC ACID [Concomitant]
  14. ASTOMIN (DIMEMORFAN PHOSPHATE) [Concomitant]
  15. MUCODYNE (CARBOCISTEINE) [Concomitant]
  16. LEVOFLOXACIN [Concomitant]

REACTIONS (6)
  - APHTHOUS STOMATITIS [None]
  - INTERSTITIAL LUNG DISEASE [None]
  - OXYGEN SATURATION DECREASED [None]
  - PLEURAL EFFUSION [None]
  - PNEUMOCYSTIS CARINII PNEUMONIA [None]
  - UPPER RESPIRATORY TRACT INFECTION [None]
